FAERS Safety Report 7879077-7 (Version None)
Quarter: 2011Q4

REPORT INFORMATION
  Report Type: 
  Country: None (occurrence: None)
  Receive Date: 20111101
  Receipt Date: 20111027
  Transmission Date: 20120403
  Serious: Yes (Other)
  Sender: FDA-Public Use
  Company Number: PHHY2011NL95306

PATIENT
  Sex: Male

DRUGS (3)
  1. ZOMETA [Suspect]
     Dosage: 4 MG, PER 5 ML AT 360ML/H
     Route: 042
     Dates: start: 20110928
  2. ZOMETA [Suspect]
     Indication: PROSTATE CANCER METASTATIC
     Dosage: 4 MG, PER 5 ML AT 360ML/H
     Route: 042
     Dates: start: 20110317
  3. ZOMETA [Suspect]
     Dosage: 4 MG, PER 5 ML AT 360ML/H
     Route: 042
     Dates: start: 20111027

REACTIONS (2)
  - GENERAL PHYSICAL HEALTH DETERIORATION [None]
  - WEIGHT DECREASED [None]
